FAERS Safety Report 4832639-3 (Version None)
Quarter: 2005Q4

REPORT INFORMATION
  Report Type: 
  Country: None (occurrence: None)
  Receive Date: 20051117
  Receipt Date: 20051117
  Transmission Date: 20060501
  Serious: Yes (Other)
  Sender: FDA-Public Use
  Company Number: None

PATIENT
  Age: 58 Year
  Sex: Female

DRUGS (1)
  1. HUMIRA [Suspect]
     Indication: RHEUMATOID ARTHRITIS
     Dosage: 40 MG QW SQ
     Route: 058
     Dates: start: 20050301, end: 20050701

REACTIONS (3)
  - IMMUNE SYSTEM DISORDER [None]
  - MYCOBACTERIUM AVIUM COMPLEX INFECTION [None]
  - TUBERCULOSIS [None]
